FAERS Safety Report 16965817 (Version 1)
Quarter: 2019Q4

REPORT INFORMATION
  Report Type: Spontaneous
  Country: FR (occurrence: FR)
  Receive Date: 20191028
  Receipt Date: 20191028
  Transmission Date: 20200122
  Serious: Yes (Death, Other)
  Sender: FDA-Public Use
  Company Number: FR-MYLANLABS-2019M1088843

PATIENT
  Age: 52 Year
  Sex: Male

DRUGS (4)
  1. PREGABALIN. [Suspect]
     Active Substance: PREGABALIN
     Indication: PRODUCT USED FOR UNKNOWN INDICATION
     Dosage: 3.8 MILLIGRAM PER LITRE
     Route: 065
  2. CODEINE [Suspect]
     Active Substance: CODEINE
     Indication: PRODUCT USED FOR UNKNOWN INDICATION
     Dosage: 109 FLG / L
     Route: 065
  3. MEPROBAMATE. [Suspect]
     Active Substance: MEPROBAMATE
     Indication: PRODUCT USED FOR UNKNOWN INDICATION
     Dosage: 1 MILLIGRAM PER LITRE
     Route: 065
  4. MORPHINE SULFATE. [Suspect]
     Active Substance: MORPHINE SULFATE
     Indication: PRODUCT USED FOR UNKNOWN INDICATION
     Dosage: 1 FLG / L
     Route: 065

REACTIONS (4)
  - Drug screen positive [Unknown]
  - Mucosal discolouration [Unknown]
  - Conjunctival discolouration [Unknown]
  - Death [Fatal]
